FAERS Safety Report 7030867-2 (Version None)
Quarter: 2010Q4

REPORT INFORMATION
  Report Type: 
  Country: None (occurrence: None)
  Receive Date: 20101006
  Receipt Date: 20100927
  Transmission Date: 20110411
  Serious: Yes (Hospitalization)
  Sender: FDA-Public Use
  Company Number: JP-ABBOTT-10P-087-0671451-00

PATIENT
  Sex: Female

DRUGS (5)
  1. HUMIRA [Suspect]
     Indication: RHEUMATOID ARTHRITIS
     Route: 058
     Dates: start: 20100701
  2. WARFARIN POTASSIUM [Suspect]
     Indication: HEART VALVE REPLACEMENT
     Route: 048
  3. WARFARIN POTASSIUM [Suspect]
  4. WARFARIN POTASSIUM [Suspect]
  5. WARFARIN POTASSIUM [Suspect]

REACTIONS (6)
  - ASTHMA [None]
  - CONJUNCTIVAL HAEMORRHAGE [None]
  - HAEMORRHAGE SUBCUTANEOUS [None]
  - INTERNATIONAL NORMALISED RATIO INCREASED [None]
  - MOUTH HAEMORRHAGE [None]
  - PROTHROMBIN TIME PROLONGED [None]
